FAERS Safety Report 7487011-7 (Version None)
Quarter: 2011Q2

REPORT INFORMATION
  Report Type: 
  Country: None (occurrence: None)
  Receive Date: 20110518
  Receipt Date: 20110513
  Transmission Date: 20111010
  Serious: Yes (Other)
  Sender: FDA-Public Use
  Company Number: IT-BRISTOL-MYERS SQUIBB COMPANY-15744683

PATIENT
  Age: 45 Year
  Sex: Female

DRUGS (4)
  1. PREDNISONE [Concomitant]
     Dates: start: 20110412
  2. FOTEMUSTINE [Suspect]
     Indication: MALIGNANT MELANOMA
     Route: 042
     Dates: start: 20110308
  3. IPILIMUMAB [Suspect]
     Indication: MALIGNANT MELANOMA
     Route: 042
     Dates: start: 20110308
  4. LANSOPRAZOLE [Concomitant]
     Dates: start: 20110228

REACTIONS (2)
  - NEUTROPHIL COUNT DECREASED [None]
  - PLATELET COUNT DECREASED [None]
